FAERS Safety Report 5136927-5 (Version None)
Quarter: 2006Q4

REPORT INFORMATION
  Report Type: 
  Country: None (occurrence: None)
  Receive Date: 20061023
  Receipt Date: 20061010
  Transmission Date: 20070319
  Serious: Yes (Other)
  Sender: FDA-Public Use
  Company Number: 2006125095

PATIENT
  Age: 44 Year
  Sex: Male

DRUGS (2)
  1. ATARAX [Suspect]
     Dosage: 25 MG, INTRAVENOUS
     Route: 042
  2. SOSEGON (PENTAZOCINE) [Suspect]

REACTIONS (1)
  - AMNESIA [None]
